FAERS Safety Report 22760623 (Version 5)
Quarter: 2024Q2

REPORT INFORMATION
  Report Type: Report from Study
  Country: GB (occurrence: GB)
  Receive Date: 20230728
  Receipt Date: 20240517
  Transmission Date: 20240716
  Serious: Yes (Death, Other)
  Sender: FDA-Public Use
  Company Number: GB-TAKEDA-2023TUS074030

PATIENT
  Age: 75 Year
  Sex: Male

DRUGS (3)
  1. VEDOLIZUMAB [Suspect]
     Active Substance: VEDOLIZUMAB
     Indication: Colitis ulcerative
     Dosage: UNK
     Route: 042
  2. VEDOLIZUMAB [Suspect]
     Active Substance: VEDOLIZUMAB
     Indication: Colitis ulcerative
     Dosage: 108 MILLIGRAM, Q2WEEKS
     Route: 058
  3. VEDOLIZUMAB [Suspect]
     Active Substance: VEDOLIZUMAB
     Indication: Colitis ulcerative
     Dosage: 108 MILLIGRAM, Q2WEEKS
     Route: 058

REACTIONS (11)
  - Death [Fatal]
  - Uveitis [Unknown]
  - Colitis ulcerative [Unknown]
  - Lower respiratory tract infection [Unknown]
  - Ocular vascular disorder [Unknown]
  - Inappropriate schedule of product administration [Unknown]
  - Product administration error [Unknown]
  - Scratch [Unknown]
  - Product dose omission issue [Unknown]
  - Blood pressure increased [Unknown]
  - Herpes zoster [Unknown]

NARRATIVE: CASE EVENT DATE: 20240514
